APPROVED DRUG PRODUCT: PROVOCHOLINE
Active Ingredient: METHACHOLINE CHLORIDE
Strength: 100MG/VIAL
Dosage Form/Route: FOR SOLUTION;INHALATION
Application: N019193 | Product #001
Applicant: METHAPHARM INC
Approved: Oct 31, 1986 | RLD: Yes | RS: Yes | Type: RX